FAERS Safety Report 9460541 (Version 2)
Quarter: 2013Q3

REPORT INFORMATION
  Report Type: Spontaneous
  Country: US (occurrence: US)
  Receive Date: 20130815
  Receipt Date: 20130829
  Transmission Date: 20140515
  Serious: Yes (Other)
  Sender: FDA-Public Use
  Company Number: US-ALLERGAN-1312244US

PATIENT
  Age: 30 Year
  Sex: Male

DRUGS (1)
  1. BOTOX [Suspect]
     Indication: TORTICOLLIS
     Dosage: 70 UNITS, SINGLE
     Route: 030

REACTIONS (3)
  - Monoplegia [Recovered/Resolved]
  - Muscular weakness [Recovered/Resolved]
  - Neuropathy peripheral [Recovered/Resolved]
